FAERS Safety Report 20635149 (Version 1)
Quarter: 2022Q1

REPORT INFORMATION
  Report Type: Spontaneous
  Country: US (occurrence: US)
  Receive Date: 20220325
  Receipt Date: 20220325
  Transmission Date: 20220423
  Serious: No
  Sender: FDA-Public Use
  Company Number: US-GILEAD-2022-0574923

PATIENT
  Age: 41 Year
  Sex: Female

DRUGS (1)
  1. SOFOSBUVIR\VELPATASVIR [Suspect]
     Active Substance: SOFOSBUVIR\VELPATASVIR
     Indication: Product used for unknown indication
     Route: 065

REACTIONS (6)
  - Tinnitus [Unknown]
  - Vision blurred [Unknown]
  - Dizziness [Recovering/Resolving]
  - Pain [Unknown]
  - Fatigue [Unknown]
  - Headache [Not Recovered/Not Resolved]
